FAERS Safety Report 23154813 (Version 4)
Quarter: 2025Q2

REPORT INFORMATION
  Report Type: Report from Study
  Country: US (occurrence: US)
  Receive Date: 20231107
  Receipt Date: 20250424
  Transmission Date: 20250717
  Serious: Yes (Death, Hospitalization, Other)
  Sender: TAKEDA
  Company Number: US-TAKEDA-2023TUS106639

PATIENT
  Age: 80 Year
  Sex: Male

DRUGS (2)
  1. PONATINIB [Suspect]
     Active Substance: PONATINIB
     Indication: Acute lymphocytic leukaemia
  2. PONATINIB [Suspect]
     Active Substance: PONATINIB
     Indication: Neoplasm malignant
     Dosage: 15 MILLIGRAM, QD
     Dates: start: 20231106, end: 20231224

REACTIONS (4)
  - Death [Fatal]
  - Acute lymphocytic leukaemia [Recovering/Resolving]
  - Weight decreased [Unknown]
  - Product dose omission issue [Unknown]

NARRATIVE: CASE EVENT DATE: 20231224
